FAERS Safety Report 9150143 (Version 1)
Quarter: 2013Q1

REPORT INFORMATION
  Report Type: Spontaneous
  Country: US (occurrence: None)
  Receive Date: 20130131
  Receipt Date: 20130131
  Transmission Date: 20140127
  Serious: Yes (Other)
  Sender: FDA-Public Use
  Company Number: B0863077A

PATIENT
  Age: 50 Year
  Sex: Female

DRUGS (1)
  1. EPOPROSTENOL SODIUM [Suspect]
     Indication: PORTOPULMONARY HYPERTENSION
     Route: 042

REACTIONS (5)
  - Hypersplenism [None]
  - Pancytopenia [None]
  - Splenomegaly [None]
  - Shock [None]
  - Cholecystectomy [None]
